FAERS Safety Report 23359983 (Version 1)
Quarter: 2024Q1

REPORT INFORMATION
  Report Type: Spontaneous
  Country: US (occurrence: US)
  Receive Date: 20240103
  Receipt Date: 20240103
  Transmission Date: 20240410
  Serious: No
  Sender: FDA-Public Use
  Company Number: US-Accord-365989

PATIENT
  Sex: Female

DRUGS (1)
  1. SERTRALINE [Suspect]
     Active Substance: SERTRALINE HYDROCHLORIDE
     Indication: Product used for unknown indication

REACTIONS (6)
  - Dizziness [Unknown]
  - Feeling drunk [Unknown]
  - Miosis [Unknown]
  - Glassy eyes [Unknown]
  - Nausea [Unknown]
  - Decreased appetite [Unknown]
